FAERS Safety Report 8019138-5 (Version None)
Quarter: 2011Q4

REPORT INFORMATION
  Report Type: 
  Country: None (occurrence: None)
  Receive Date: 20111229
  Receipt Date: 20111214
  Transmission Date: 20120403
  Serious: Yes (Other)
  Sender: FDA-Public Use
  Company Number: HA11-326-AE

PATIENT
  Age: 51 Year
  Sex: Male
  Weight: 87.9978 kg

DRUGS (7)
  1. OMEPRAZONE [Concomitant]
  2. HYDROMORPHONE HCL [Concomitant]
  3. TRAMADOL HCL [Suspect]
     Indication: PRODUCT USED FOR UNKNOWN INDICATION
     Dosage: 1 TABLET, QID, ORAL
     Route: 048
     Dates: start: 20110309, end: 20110316
  4. FLUOXETINE [Concomitant]
  5. BACLOFEN [Concomitant]
  6. GABAPENTIN [Concomitant]
  7. FENTANYL-100 [Concomitant]

REACTIONS (12)
  - HYPERTENSION [None]
  - DECREASED APPETITE [None]
  - VISION BLURRED [None]
  - VOMITING [None]
  - COMA [None]
  - EYE DISORDER [None]
  - TOOTH LOSS [None]
  - HEADACHE [None]
  - CHEST PAIN [None]
  - WEIGHT FLUCTUATION [None]
  - DYSPNOEA [None]
  - WEIGHT DECREASED [None]
